FAERS Safety Report 24343157 (Version 1)
Quarter: 2024Q3

REPORT INFORMATION
  Report Type: Spontaneous
  Country: CA (occurrence: CA)
  Receive Date: 20240920
  Receipt Date: 20240920
  Transmission Date: 20241016
  Serious: Yes (Other)
  Sender: CHEPLAPHARM
  Company Number: CA-CHEPLA-2024011907

PATIENT
  Age: 43 Year
  Sex: Male

DRUGS (7)
  1. CLONAZEPAM [Suspect]
     Active Substance: CLONAZEPAM
     Indication: Product used for unknown indication
  2. ABILIFY [Suspect]
     Active Substance: ARIPIPRAZOLE
     Indication: Blood prolactin increased
     Dosage: DAILY DOSE: 2 MILLIGRAM
  3. ABILIFY [Suspect]
     Active Substance: ARIPIPRAZOLE
     Indication: Blood prolactin increased
  4. ABILIFY [Suspect]
     Active Substance: ARIPIPRAZOLE
     Indication: Blood prolactin increased
     Dosage: KIT
  5. ABILIFY [Suspect]
     Active Substance: ARIPIPRAZOLE
     Indication: Blood prolactin increased
  6. ABILIFY [Suspect]
     Active Substance: ARIPIPRAZOLE
     Indication: Blood prolactin increased
  7. PALIPERIDONE PALMITATE [Suspect]
     Active Substance: PALIPERIDONE PALMITATE
     Indication: Product used for unknown indication

REACTIONS (9)
  - Aphonia [Not Recovered/Not Resolved]
  - Asthenia [Not Recovered/Not Resolved]
  - Bruxism [Not Recovered/Not Resolved]
  - Dysphonia [Not Recovered/Not Resolved]
  - Hallucination, auditory [Not Recovered/Not Resolved]
  - Overdose [Not Recovered/Not Resolved]
  - Somnolence [Not Recovered/Not Resolved]
  - Tendon disorder [Not Recovered/Not Resolved]
  - Tooth disorder [Not Recovered/Not Resolved]
